FAERS Safety Report 11026690 (Version 1)
Quarter: 2015Q2

REPORT INFORMATION
  Report Type: Spontaneous
  Country: BE (occurrence: BE)
  Receive Date: 20150414
  Receipt Date: 20150414
  Transmission Date: 20150821
  Serious: Yes (Hospitalization)
  Sender: FDA-Public Use
  Company Number: BE-TAKEDA-2015TUS004656

PATIENT
  Age: 73 Year
  Sex: Female
  Weight: 75 kg

DRUGS (9)
  1. ALLERGODIL [Concomitant]
     Active Substance: AZELASTINE
     Dosage: UNK
     Route: 065
     Dates: start: 20101013
  2. AERIUS [Concomitant]
     Active Substance: DESLORATADINE
     Dosage: UNK
     Route: 065
     Dates: start: 20110505
  3. ZYLORIC [Concomitant]
     Active Substance: ALLOPURINOL
     Dosage: 100 MG, 1 IN 1 D
     Route: 065
     Dates: start: 20060807
  4. COLCHICINE. [Suspect]
     Active Substance: COLCHICINE
     Indication: GOUTY ARTHRITIS
     Dosage: UNK
     Route: 065
  5. ELTHYRONE [Concomitant]
     Active Substance: LEVOTHYROXINE
     Dosage: 0.1 MG, 1 IN 1 D
     Route: 065
     Dates: start: 20060807
  6. LOSEC [Concomitant]
     Active Substance: OMEPRAZOLE
     Dosage: 20 MG, 1 IN 1 D
     Dates: start: 20060807
  7. ADENURIC [Suspect]
     Active Substance: FEBUXOSTAT
     Indication: GOUTY ARTHRITIS
     Dosage: 120 MG, 1 IN 1 D
     Route: 065
     Dates: start: 20141218
  8. SINGULAIR [Concomitant]
     Active Substance: MONTELUKAST SODIUM
     Dosage: 10 MG, 1 IN 1 D
     Route: 065
     Dates: start: 20060807
  9. MODURETIC 5-50 [Concomitant]
     Active Substance: AMILORIDE HYDROCHLORIDE\HYDROCHLOROTHIAZIDE
     Dosage: 50 MG/ 5 MG, 1 IN 1D
     Route: 065
     Dates: start: 20060807

REACTIONS (1)
  - Hepatitis toxic [Recovering/Resolving]

NARRATIVE: CASE EVENT DATE: 201501
